FAERS Safety Report 7353545-9 (Version None)
Quarter: 2011Q1

REPORT INFORMATION
  Report Type: 
  Country: None (occurrence: None)
  Receive Date: 20110315
  Receipt Date: 20110308
  Transmission Date: 20110831
  Serious: Yes (Hospitalization)
  Sender: FDA-Public Use
  Company Number: US-ELI_LILLY_AND_COMPANY-US201101004099

PATIENT
  Sex: Female

DRUGS (6)
  1. SIMVASTATIN [Concomitant]
  2. ASPIRIN [Concomitant]
  3. STOOL SOFTENER [Concomitant]
  4. DIOVAN [Concomitant]
  5. FORTEO [Suspect]
     Indication: OSTEOPOROSIS
     Dosage: 20 UG, DAILY (1/D)
     Dates: start: 20100901, end: 20101217
  6. VITAMIN D [Concomitant]

REACTIONS (2)
  - FEELING ABNORMAL [None]
  - INTESTINAL OBSTRUCTION [None]
